FAERS Safety Report 21717491 (Version 1)
Quarter: 2022Q4

REPORT INFORMATION
  Report Type: Spontaneous
  Country: US (occurrence: None)
  Receive Date: 20221212
  Receipt Date: 20221212
  Transmission Date: 20230113
  Serious: No
  Sender: FDA-Public Use
  Company Number: None

PATIENT
  Age: 40 Year
  Sex: Male
  Weight: 86 kg

DRUGS (1)
  1. TESTOSTERONE CYPIONATE [Suspect]
     Active Substance: TESTOSTERONE CYPIONATE
     Indication: Androgen deficiency
     Dosage: 80 MG QWEEK IM?
     Route: 030
     Dates: start: 20181212

REACTIONS (4)
  - Sluggishness [None]
  - Depression [None]
  - Libido decreased [None]
  - Product substitution issue [None]

NARRATIVE: CASE EVENT DATE: 20211224
